FAERS Safety Report 10217433 (Version 2)
Quarter: 2014Q2

REPORT INFORMATION
  Report Type: Report from Study
  Country: US (occurrence: US)
  Receive Date: 20140604
  Receipt Date: 20140609
  Transmission Date: 20141212
  Serious: Yes (Hospitalization, Other)
  Sender: FDA-Public Use
  Company Number: US-BRISTOL-MYERS SQUIBB COMPANY-20824439

PATIENT
  Age: 68 Year
  Sex: Male
  Weight: 94.3 kg

DRUGS (1)
  1. IPILIMUMAB [Suspect]
     Indication: MALIGNANT MELANOMA
     Dosage: 10 MG/KG IV OVER 90 MINS, Q3 WKS X 4DOSES (Q12 WKS,WEEKS 24,36,48,60)?TOTAL DOSE: 964MG
     Route: 042
     Dates: start: 20140120, end: 20140324

REACTIONS (3)
  - Large intestine perforation [Not Recovered/Not Resolved]
  - Muscular weakness [Recovering/Resolving]
  - Diarrhoea [Recovered/Resolved]
